FAERS Safety Report 6105489-8 (Version None)
Quarter: 2009Q1

REPORT INFORMATION
  Report Type: 
  Country: None (occurrence: None)
  Receive Date: 20090306
  Receipt Date: 20090227
  Transmission Date: 20090719
  Serious: Yes (Hospitalization)
  Sender: FDA-Public Use
  Company Number: A0771640A

PATIENT
  Age: 51 Year
  Sex: Male

DRUGS (9)
  1. AVANDIA [Suspect]
     Indication: DIABETES MELLITUS
     Dosage: 4MG TWICE PER DAY
     Route: 048
     Dates: start: 20001110, end: 20060101
  2. ACTOS [Concomitant]
  3. STARLIX [Concomitant]
  4. INSULIN [Concomitant]
  5. CELEBREX [Concomitant]
  6. VALIUM [Concomitant]
  7. ACEON [Concomitant]
  8. NAPROXEN [Concomitant]
  9. WELLBUTRIN [Concomitant]

REACTIONS (3)
  - CARDIAC FAILURE CONGESTIVE [None]
  - CORONARY ARTERY DISEASE [None]
  - MYOCARDIAL INFARCTION [None]
